FAERS Safety Report 4368043-4 (Version None)
Quarter: 2004Q2

REPORT INFORMATION
  Report Type: 
  Country: None (occurrence: None)
  Receive Date: 20040602
  Receipt Date: 20040521
  Transmission Date: 20050107
  Serious: Yes (Death, Other)
  Sender: FDA-Public Use
  Company Number: US-BRISTOL-MYERS SQUIBB COMPANY-12592689

PATIENT
  Age: 93 Year
  Sex: Female

DRUGS (2)
  1. MEGACE [Suspect]
     Indication: ANOREXIA
     Dates: start: 20040301
  2. DIGOXIN [Concomitant]

REACTIONS (3)
  - CONTUSION [None]
  - DEATH [None]
  - HAEMATOMA [None]
